FAERS Safety Report 21923424 (Version 1)
Quarter: 2023Q1

REPORT INFORMATION
  Report Type: Spontaneous
  Country: US (occurrence: US)
  Receive Date: 20230129
  Receipt Date: 20230129
  Transmission Date: 20230417
  Serious: No
  Sender: FDA-Public Use
  Company Number: US-CIPLA LTD.-2022US06726

PATIENT
  Sex: Female

DRUGS (11)
  1. ALBUTEROL [Suspect]
     Active Substance: ALBUTEROL
     Indication: Cough
     Dosage: 0.18 MILLIGRAM, PRN, (2 PUFFS), EVERY 4 HOUR AS NEEDED
     Dates: start: 20221104
  2. ALBUTEROL [Suspect]
     Active Substance: ALBUTEROL
     Indication: Wheezing
     Dosage: UNK, REPLACEMENT INHALER
     Dates: start: 2022
  3. TUSSIN DM [Concomitant]
     Active Substance: DEXTROMETHORPHAN HYDROBROMIDE\GUAIFENESIN
     Indication: Cough
     Dosage: 20 MILLILITER, PRN (EVERY 4 HOURS AS NEEDED)
     Route: 065
     Dates: start: 202210
  4. TYLENOL [Concomitant]
     Active Substance: ACETAMINOPHEN
     Indication: Sinus headache
     Dosage: 650 MILLIGRAM, PRN (1 TABLET AS NEEDED)
     Route: 065
     Dates: start: 202210
  5. MOTRIN [Concomitant]
     Active Substance: IBUPROFEN
     Indication: Sinus headache
     Dosage: 400 MILLIGRAM, PRN (ONCE A DAY AS NEEDED)
     Route: 065
     Dates: start: 20221107
  6. MOTRIN [Concomitant]
     Active Substance: IBUPROFEN
     Indication: Nasal inflammation
  7. PSEUDOEPHEDRINE HYDROCHLORIDE [Concomitant]
     Active Substance: PSEUDOEPHEDRINE HYDROCHLORIDE
     Indication: Nasal congestion
     Dosage: 1 DOSAGE FORM, QD
     Route: 065
     Dates: start: 202210
  8. PSEUDOEPHEDRINE HYDROCHLORIDE [Concomitant]
     Active Substance: PSEUDOEPHEDRINE HYDROCHLORIDE
     Indication: Paranasal sinus discomfort
  9. PSEUDOEPHEDRINE HYDROCHLORIDE [Concomitant]
     Active Substance: PSEUDOEPHEDRINE HYDROCHLORIDE
     Indication: Condition aggravated
  10. PSEUDOEPHEDRINE HYDROCHLORIDE [Concomitant]
     Active Substance: PSEUDOEPHEDRINE HYDROCHLORIDE
     Indication: Allergic sinusitis
  11. ROBITUSSIN DM [Concomitant]
     Active Substance: DEXTROMETHORPHAN HYDROBROMIDE\GUAIFENESIN
     Indication: Cough
     Dosage: 20 MILLILITER, PRN (EVERY 4 HOURS AS NEEDED)
     Route: 065
     Dates: start: 202210

REACTIONS (10)
  - Dyspnoea [Not Recovered/Not Resolved]
  - Cough [Not Recovered/Not Resolved]
  - Chest discomfort [Not Recovered/Not Resolved]
  - Incorrect dose administered by device [Unknown]
  - Device delivery system issue [Unknown]
  - Product dose omission issue [Unknown]
  - Drug dose omission by device [Unknown]
  - Device issue [Unknown]
  - Product substitution issue [Unknown]
  - Product cleaning inadequate [Unknown]

NARRATIVE: CASE EVENT DATE: 20221109
